FAERS Safety Report 4608969-7 (Version None)
Quarter: 2005Q1

REPORT INFORMATION
  Report Type: 
  Country: None (occurrence: None)
  Receive Date: 20050310
  Receipt Date: 20050222
  Transmission Date: 20050727
  Serious: Yes (Hospitalization, Other)
  Sender: FDA-Public Use
  Company Number: 2004-BP-11398YA

PATIENT
  Age: 41 Year
  Sex: Male

DRUGS (6)
  1. HARNAL (TAMSULOSIN) [Suspect]
     Indication: SPINOCEREBELLAR DISORDER
     Dosage: 0.2 MG (NR) PO
     Route: 048
     Dates: end: 20041020
  2. DANTRIUM (DANTROLENE SODIUM) (NR) [Suspect]
     Indication: SPINOCEREBELLAR DISORDER
     Dosage: 25 MG (NR) PO
     Route: 048
     Dates: end: 20041020
  3. LIORESAL (DANTROLENE SODIUM) (NR) [Suspect]
     Indication: SPINOCEREBELLAR DISORDER
     Dosage: 6 DF (NR) PO
     Route: 048
     Dates: end: 20041020
  4. TERNELIN (TIZANIDINE HYDROCHLORIDE) (NR) [Suspect]
     Indication: SPINOCEREBELLAR DISORDER
     Dosage: 1 MG TID (NR, TID) PO
     Route: 048
  5. VITAMEDIN (BENFOTIAMINE/B6/B12) (NR) [Concomitant]
  6. DIAZEPAM [Concomitant]

REACTIONS (8)
  - ALANINE AMINOTRANSFERASE INCREASED [None]
  - ASPARTATE AMINOTRANSFERASE INCREASED [None]
  - BLOOD BILIRUBIN INCREASED [None]
  - BLOOD LACTATE DEHYDROGENASE INCREASED [None]
  - GAMMA-GLUTAMYLTRANSFERASE INCREASED [None]
  - LIVER DISORDER [None]
  - LYMPHOCYTE STIMULATION TEST POSITIVE [None]
  - MALAISE [None]
